FAERS Safety Report 26111462 (Version 1)
Quarter: 2025Q4

REPORT INFORMATION
  Report Type: Spontaneous
  Country: EU (occurrence: EU)
  Receive Date: 20251202
  Receipt Date: 20251202
  Transmission Date: 20260117
  Serious: Yes (Life-Threatening, Hospitalization, Other)
  Sender: PHARMOBEDIENT CONSULTING, LLC
  Company Number: EU-Pharmobedient-000568

PATIENT
  Age: 51 Year
  Sex: Male

DRUGS (1)
  1. CLADRIBINE [Suspect]
     Active Substance: CLADRIBINE
     Indication: Hairy cell leukaemia
     Dosage: 5-DAY COURSE
     Dates: start: 201804

REACTIONS (1)
  - Meningitis cryptococcal [Not Recovered/Not Resolved]

NARRATIVE: CASE EVENT DATE: 20180801
